FAERS Safety Report 7504333-1 (Version None)
Quarter: 2011Q2

REPORT INFORMATION
  Report Type: 
  Country: None (occurrence: None)
  Receive Date: 20110525
  Receipt Date: 20110523
  Transmission Date: 20111010
  Serious: Yes (Hospitalization)
  Sender: FDA-Public Use
  Company Number: CZ-ABBOTT-11P-217-0719306-00

PATIENT
  Sex: Male

DRUGS (1)
  1. HUMIRA [Suspect]
     Indication: ANKYLOSING SPONDYLITIS
     Route: 058
     Dates: start: 20100729, end: 20110331

REACTIONS (6)
  - C-REACTIVE PROTEIN INCREASED [None]
  - BODY TEMPERATURE INCREASED [None]
  - RED BLOOD CELL SEDIMENTATION RATE INCREASED [None]
  - FATIGUE [None]
  - ABDOMINAL PAIN [None]
  - HYPERHIDROSIS [None]
